FAERS Safety Report 8818341 (Version 2)
Quarter: 2013Q2

REPORT INFORMATION
  Report Type: Report from Study
  Country: CA (occurrence: CA)
  Receive Date: 20121001
  Receipt Date: 20130426
  Transmission Date: 20140414
  Serious: Yes (Other)
  Sender: FDA-Public Use
  Company Number: CA-INCYTE CORPORATION-2012IN001918

PATIENT
  Age: 72 Year
  Sex: Male

DRUGS (2)
  1. JAKAVI [Suspect]
     Indication: MYELOFIBROSIS
     Dosage: 10 MG, BID
     Route: 048
     Dates: start: 201203, end: 2012
  2. JAKAVI [Suspect]
     Dosage: 15 MG, BID
     Route: 048
     Dates: start: 201208

REACTIONS (3)
  - Mouth haemorrhage [Recovered/Resolved]
  - Pruritus [Unknown]
  - Insomnia [Unknown]
